FAERS Safety Report 24753168 (Version 1)
Quarter: 2024Q4

REPORT INFORMATION
  Report Type: Spontaneous
  Country: US (occurrence: US)
  Receive Date: 20241219
  Receipt Date: 20241219
  Transmission Date: 20250115
  Serious: No
  Sender: PACIRA
  Company Number: US-ORG100016242-2023000354

PATIENT
  Sex: Male

DRUGS (3)
  1. EXPAREL [Suspect]
     Active Substance: BUPIVACAINE
     Indication: Nerve block
     Dosage: 10 ML ON 7:33 AM
     Route: 065
  2. LIDOCAINE [Suspect]
     Active Substance: LIDOCAINE
     Indication: Nerve block
     Dosage: NOT PROVIDED
     Route: 065
  3. KETAMINE [Suspect]
     Active Substance: KETAMINE
     Indication: Nerve block
     Dosage: NOT PROVIDED
     Route: 065

REACTIONS (5)
  - Off label use [Unknown]
  - Dyspnoea [Unknown]
  - Anaemia [Unknown]
  - Contusion [Unknown]
  - Labelled drug-drug interaction medication error [Unknown]
